FAERS Safety Report 25969475 (Version 1)
Quarter: 2025Q4

REPORT INFORMATION
  Report Type: Spontaneous
  Country: US (occurrence: None)
  Receive Date: 20251028
  Receipt Date: 20251028
  Transmission Date: 20260118
  Serious: Yes (Hospitalization)
  Sender: FDA-CTU
  Company Number: None

PATIENT
  Sex: Female

DRUGS (11)
  1. LENALIDOMIDE [Suspect]
     Active Substance: LENALIDOMIDE
     Indication: 5q minus syndrome
     Dosage: OTHER FREQUENCY : IN THE MORNING FOR 14 DAYS, THEN OFF FOR 7 DAYS;?
     Route: 048
     Dates: start: 20250829
  2. ASPIRIN LOW EC [Concomitant]
  3. ATORVASTATIN [Concomitant]
     Active Substance: ATORVASTATIN
  4. BACLOFEN [Concomitant]
     Active Substance: BACLOFEN
  5. CEFTRIAXONE SODIUM [Concomitant]
     Active Substance: CEFTRIAXONE SODIUM
  6. CHOLESTYRAMI POW RESIN [Concomitant]
  7. EPIPEN [Concomitant]
     Active Substance: EPINEPHRINE
  8. FEBUXOSTAT [Concomitant]
     Active Substance: FEBUXOSTAT
  9. FLUTICASONE SPR [Concomitant]
  10. FUROSEMIDE [Concomitant]
     Active Substance: FUROSEMIDE
  11. HYDROMORPHONE [Concomitant]
     Active Substance: HYDROMORPHONE

REACTIONS (3)
  - Muscle spasms [None]
  - Infection [None]
  - Inappropriate schedule of product administration [None]
